FAERS Safety Report 16162752 (Version 1)
Quarter: 2019Q2

REPORT INFORMATION
  Report Type: Spontaneous
  Country: JP (occurrence: JP)
  Receive Date: 20190405
  Receipt Date: 20190405
  Transmission Date: 20190711
  Serious: Yes (Death, Other)
  Sender: FDA-Public Use
  Company Number: JP-TAKEDA-2019TJP007513

PATIENT
  Age: 67 Year
  Sex: Male
  Weight: 61 kg

DRUGS (14)
  1. NINLARO [Suspect]
     Active Substance: IXAZOMIB CITRATE
     Dosage: 4 MILLIGRAM, 1/WEEK
     Route: 048
     Dates: start: 20170928, end: 20171005
  2. REVLIMID [Concomitant]
     Active Substance: LENALIDOMIDE
     Dosage: 5 MILLIGRAM, QD
     Route: 048
     Dates: start: 20170928, end: 20171007
  3. DEXAMETHASONE. [Concomitant]
     Active Substance: DEXAMETHASONE
     Dosage: 40 MILLIGRAM, 1/WEEK
     Route: 048
     Dates: start: 20170928, end: 20171005
  4. REVLIMID [Concomitant]
     Active Substance: LENALIDOMIDE
     Dosage: 5 MILLIGRAM, 3/WEEK
     Route: 048
     Dates: start: 20170830
  5. SULFAMETHOXAZOLE W/TRIMETHOPRIM [Concomitant]
     Active Substance: SULFAMETHOXAZOLE\TRIMETHOPRIM
     Indication: PROPHYLAXIS
     Dosage: UNK
     Route: 065
  6. NINLARO [Suspect]
     Active Substance: IXAZOMIB CITRATE
     Dosage: 3 MILLIGRAM, 1/WEEK
     Route: 048
     Dates: start: 20171019, end: 20171019
  7. REVLIMID [Concomitant]
     Active Substance: LENALIDOMIDE
     Dosage: 5 MILLIGRAM, 3/WEEK
     Route: 048
     Dates: start: 20171019
  8. DEXAMETHASONE. [Concomitant]
     Active Substance: DEXAMETHASONE
     Dosage: 40 MILLIGRAM, 1/WEEK
     Route: 048
     Dates: start: 20170830, end: 20170920
  9. NINLARO [Suspect]
     Active Substance: IXAZOMIB CITRATE
     Indication: PLASMA CELL MYELOMA
     Dosage: 4 MILLIGRAM, 1/WEEK
     Route: 048
     Dates: start: 20170727, end: 20170810
  10. REVLIMID [Concomitant]
     Active Substance: LENALIDOMIDE
     Indication: PLASMA CELL MYELOMA
     Dosage: 5 MILLIGRAM, QD
     Route: 048
     Dates: start: 20170727, end: 20170816
  11. DEXAMETHASONE. [Concomitant]
     Active Substance: DEXAMETHASONE
     Indication: PLASMA CELL MYELOMA
     Dosage: 40 MILLIGRAM, 1/WEEK
     Route: 048
     Dates: start: 20170727, end: 20170817
  12. ACICLOVIR [Concomitant]
     Active Substance: ACYCLOVIR
     Indication: PROPHYLAXIS
     Dosage: UNK
     Route: 065
  13. NINLARO [Suspect]
     Active Substance: IXAZOMIB CITRATE
     Dosage: 4 MILLIGRAM, 1/WEEK
     Route: 048
     Dates: start: 20170830, end: 20170913
  14. DEXAMETHASONE. [Concomitant]
     Active Substance: DEXAMETHASONE
     Dosage: 40 MILLIGRAM, 1/WEEK
     Route: 048
     Dates: start: 20171019, end: 20171019

REACTIONS (1)
  - Cardiac failure [Fatal]
